FAERS Safety Report 19713641 (Version 2)
Quarter: 2021Q3

REPORT INFORMATION
  Report Type: Report from Study
  Country: None (occurrence: US)
  Receive Date: 20210817
  Receipt Date: 20210823
  Transmission Date: 20211014
  Serious: Yes (Other)
  Sender: FDA-Public Use
  Company Number: US-ABBVIE-21K-163-4041452-00

PATIENT
  Age: 54 Year
  Sex: Male
  Weight: 92 kg

DRUGS (2)
  1. IMBRUVICA [Suspect]
     Active Substance: IBRUTINIB
     Route: 048
  2. IMBRUVICA [Suspect]
     Active Substance: IBRUTINIB
     Indication: CHRONIC LYMPHOCYTIC LEUKAEMIA
     Route: 048
     Dates: start: 20180421, end: 20200612

REACTIONS (4)
  - Appendicitis perforated [Recovered/Resolved]
  - Thyroid mass [Recovered/Resolved]
  - Abscess [Recovered/Resolved]
  - Hypermetabolism [Recovered/Resolved]

NARRATIVE: CASE EVENT DATE: 2019
